FAERS Safety Report 9543194 (Version 1)
Quarter: 2013Q3

REPORT INFORMATION
  Report Type: Spontaneous
  Country: US (occurrence: US)
  Receive Date: 20130923
  Receipt Date: 20130923
  Transmission Date: 20140515
  Serious: Yes (Other)
  Sender: FDA-Public Use
  Company Number: US-NAPPMUNDI-USA-2012-0094743

PATIENT
  Sex: Male

DRUGS (7)
  1. HYDROMORPHONE HCL (SIMILAR TO 19-892) [Suspect]
     Indication: FOETAL EXPOSURE DURING PREGNANCY
  2. MORPHINE SULFATE (SIMILAR TO NDA 19-516) [Suspect]
     Indication: FOETAL EXPOSURE DURING PREGNANCY
  3. OXYCODONE HYDROCHLORIDE (SIMILAR TO NDA 22-272) [Suspect]
     Indication: FOETAL EXPOSURE DURING PREGNANCY
  4. AMPHETAMINE [Suspect]
     Indication: FOETAL EXPOSURE DURING PREGNANCY
  5. COCAINE [Suspect]
     Indication: FOETAL EXPOSURE DURING PREGNANCY
  6. HYDROCODONE [Suspect]
     Indication: FOETAL EXPOSURE DURING PREGNANCY
  7. METHAMPHETAMINE [Suspect]
     Indication: FOETAL EXPOSURE DURING PREGNANCY

REACTIONS (1)
  - Foetal exposure during pregnancy [Unknown]
